FAERS Safety Report 9293144 (Version 1)
Quarter: 2013Q2

REPORT INFORMATION
  Report Type: Spontaneous
  Country: US (occurrence: None)
  Receive Date: 20130514
  Receipt Date: 20130514
  Transmission Date: 20140414
  Serious: Yes (Other)
  Sender: FDA-Public Use
  Company Number: 2013US002628

PATIENT
  Age: 76 Year
  Sex: Female

DRUGS (2)
  1. HORIZANT [Suspect]
     Indication: POST HERPETIC NEURALGIA
     Route: 048
     Dates: start: 20130308, end: 20130401
  2. LORAZEPAM [Concomitant]

REACTIONS (6)
  - Suicidal ideation [None]
  - Negative thoughts [None]
  - Depression [None]
  - Abdominal distension [None]
  - Irritability [None]
  - Pruritus [None]
